FAERS Safety Report 19418091 (Version 1)
Quarter: 2021Q2

REPORT INFORMATION
  Report Type: Spontaneous
  Country: US (occurrence: US)
  Receive Date: 20210615
  Receipt Date: 20210615
  Transmission Date: 20210717
  Serious: No
  Sender: FDA-Public Use
  Company Number: US-GLOBAL BLOOD THERAPEUTICS INC-US-GBT-21-00842

PATIENT
  Age: 45 Year
  Sex: Female

DRUGS (2)
  1. OXBRYTA [Suspect]
     Active Substance: VOXELOTOR
     Indication: SICKLE CELL DISEASE
     Dosage: NOT PROVIDED
     Dates: start: 20210201, end: 20210205
  2. OXBRYTA [Suspect]
     Active Substance: VOXELOTOR
     Dosage: NOT PROVIDED
     Dates: start: 202102

REACTIONS (8)
  - Dehydration [Not Recovered/Not Resolved]
  - Constipation [Recovered/Resolved]
  - Hepatic enzyme increased [Unknown]
  - Abdominal pain upper [Recovered/Resolved]
  - Nausea [Recovered/Resolved]
  - Pain [Recovered/Resolved]
  - Fatigue [Recovered/Resolved]
  - Headache [Recovered/Resolved]

NARRATIVE: CASE EVENT DATE: 2021
